FAERS Safety Report 20098249 (Version 2)
Quarter: 2021Q4

REPORT INFORMATION
  Report Type: Spontaneous
  Country: CA (occurrence: CA)
  Receive Date: 20211122
  Receipt Date: 20211124
  Transmission Date: 20220303
  Serious: Yes (Hospitalization)
  Sender: FDA-Public Use
  Company Number: CA-PFIZER INC-202101565199

PATIENT
  Age: 2 Day
  Sex: Male
  Weight: 3 kg

DRUGS (4)
  1. VENLAFAXINE HCL [Suspect]
     Active Substance: VENLAFAXINE HYDROCHLORIDE
     Indication: Depression
     Dosage: 225 MG, ONCE A DAY (1 EVERY 1 DAYS)
     Route: 048
  2. AMPICILLIN [Concomitant]
     Active Substance: AMPICILLIN
     Dosage: UNK
  3. GENTAMICIN [Concomitant]
     Active Substance: GENTAMICIN
     Dosage: UNK
  4. VITAMIN K [Concomitant]
     Active Substance: PHYTONADIONE
     Dosage: UNK

REACTIONS (7)
  - Drug withdrawal syndrome neonatal [Recovered/Resolved]
  - Gaze palsy [Recovered/Resolved]
  - Irritability [Recovered/Resolved]
  - Neonatal respiratory distress syndrome [Recovered/Resolved]
  - Neonatal tachypnoea [Recovered/Resolved]
  - Tremor neonatal [Recovered/Resolved]
  - Off label use [Unknown]
